FAERS Safety Report 4288563-0 (Version None)
Quarter: 2004Q1

REPORT INFORMATION
  Report Type: 
  Country: None (occurrence: None)
  Receive Date: 20040205
  Receipt Date: 20040121
  Transmission Date: 20041129
  Serious: Yes (Hospitalization)
  Sender: FDA-Public Use
  Company Number: 173185

PATIENT
  Age: 43 Year
  Sex: Female

DRUGS (2)
  1. AVONEX [Suspect]
     Indication: MULTIPLE SCLEROSIS
     Dosage: 30 MCG IM
     Route: 030
     Dates: start: 20010401, end: 20030501
  2. SEROQUEL [Concomitant]

REACTIONS (11)
  - APHASIA [None]
  - BLINDNESS UNILATERAL [None]
  - DYSGRAPHIA [None]
  - DYSPEPSIA [None]
  - DYSPHAGIA [None]
  - FALL [None]
  - INFLUENZA LIKE ILLNESS [None]
  - MENTAL DISORDER [None]
  - MOBILITY DECREASED [None]
  - PYREXIA [None]
  - VISUAL ACUITY REDUCED [None]
